FAERS Safety Report 24892349 (Version 1)
Quarter: 2025Q1

REPORT INFORMATION
  Report Type: Spontaneous
  Country: US (occurrence: US)
  Receive Date: 20250128
  Receipt Date: 20250128
  Transmission Date: 20250408
  Serious: Yes (Hospitalization, Other)
  Sender: ORGANON
  Company Number: US-ORGANON-O2501USA002582

PATIENT
  Age: 85 Year
  Sex: Male

DRUGS (13)
  1. COZAAR [Suspect]
     Active Substance: LOSARTAN POTASSIUM
     Indication: Product used for unknown indication
  2. ORGOVYX [Suspect]
     Active Substance: RELUGOLIX
     Indication: Prostate cancer
     Route: 048
  3. ORGOVYX [Suspect]
     Active Substance: RELUGOLIX
     Dosage: 120 MILLIGRAM, QD
     Route: 048
     Dates: start: 20240625
  4. ORGOVYX [Suspect]
     Active Substance: RELUGOLIX
     Route: 048
  5. ORGOVYX [Suspect]
     Active Substance: RELUGOLIX
     Route: 048
  6. ORGOVYX [Suspect]
     Active Substance: RELUGOLIX
     Route: 048
     Dates: start: 20240624, end: 20240624
  7. ORGOVYX [Suspect]
     Active Substance: RELUGOLIX
     Dosage: 120 MILLIGRAM, QD
     Route: 048
     Dates: start: 20240625
  8. XARELTO [Suspect]
     Active Substance: RIVAROXABAN
     Indication: Product used for unknown indication
     Route: 065
  9. BACTRIM [Suspect]
     Active Substance: SULFAMETHOXAZOLE\TRIMETHOPRIM
     Indication: Surgery
     Route: 065
  10. CARVEDILOL [Suspect]
     Active Substance: CARVEDILOL
     Route: 065
  11. FLOMAX [Concomitant]
     Active Substance: TAMSULOSIN HYDROCHLORIDE
     Dosage: 0.8 MILLIGRAM, QD
  12. FLOMAX [Concomitant]
     Active Substance: TAMSULOSIN HYDROCHLORIDE
     Dosage: 0.8 MILLIGRAM, BID
  13. AZO [Concomitant]
     Active Substance: PHENAZOPYRIDINE HYDROCHLORIDE
     Dates: start: 20240805

REACTIONS (29)
  - Hormone level abnormal [Unknown]
  - Full blood count decreased [Unknown]
  - Urinary retention [Unknown]
  - Skin cancer [Unknown]
  - Cardiac operation [Unknown]
  - Cardiac pacemaker adjustment [Unknown]
  - Hydronephrosis [Unknown]
  - Haemorrhage urinary tract [Unknown]
  - Surgery [Unknown]
  - Haemorrhoids [Unknown]
  - Renal mass [Unknown]
  - Hot flush [Unknown]
  - Hypersomnia [Unknown]
  - Rash pruritic [Unknown]
  - Blood sodium decreased [Unknown]
  - Haematocrit decreased [Unknown]
  - Urinary tract infection [Unknown]
  - Skin abrasion [Unknown]
  - Fatigue [Unknown]
  - Fall [Unknown]
  - Hypotension [Unknown]
  - Catheter site haemorrhage [Unknown]
  - Haemoglobin decreased [Unknown]
  - Joint injury [Unknown]
  - Hypersensitivity [Recovered/Resolved]
  - Red blood cell count decreased [Unknown]
  - Platelet count decreased [Unknown]
  - Eosinophil count decreased [Unknown]
  - Product dose omission issue [Unknown]

NARRATIVE: CASE EVENT DATE: 20240705
